FAERS Safety Report 5082354-9 (Version None)
Quarter: 2006Q3

REPORT INFORMATION
  Report Type: 
  Country: None (occurrence: None)
  Receive Date: 20060814
  Receipt Date: 20060802
  Transmission Date: 20061208
  Serious: Yes (Hospitalization)
  Sender: FDA-Public Use
  Company Number: 212826

PATIENT
  Age: 72 Year
  Sex: Male

DRUGS (10)
  1. XOLAIR [Suspect]
     Indication: ASTHMA
     Dosage: 375 MG, Q2W, SUBCUTANEOUS
     Route: 058
     Dates: start: 20041204, end: 20041216
  2. XOLAIR [Suspect]
     Indication: ASTHMA
     Dosage: 375 MG, Q2W, SUBCUTANEOUS
     Route: 058
     Dates: start: 20041230, end: 20041230
  3. XOLAIR [Suspect]
     Indication: ASTHMA
     Dosage: 375 MG, Q2W, SUBCUTANEOUS
     Route: 058
     Dates: start: 20041104, end: 20060316
  4. XOLAIR [Suspect]
  5. XOLAIR [Suspect]
  6. ADVAIR DISKUS 100/50 [Concomitant]
  7. ALBUTEROL (ALBUTEROL/ALBUTEROL SULFATE) [Concomitant]
  8. ATROVENT [Concomitant]
  9. TIOTROPIUM BROMIDE [Concomitant]
  10. FLU VACCINE (INFLUENZA VIRUS VACCINE) [Concomitant]

REACTIONS (7)
  - EJECTION FRACTION DECREASED [None]
  - MYOPERICARDITIS [None]
  - PERICARDIAL EFFUSION [None]
  - PERICARDITIS [None]
  - PHARMACEUTICAL PRODUCT COMPLAINT [None]
  - PYREXIA [None]
  - VENTRICULAR DYSFUNCTION [None]
